FAERS Safety Report 4696896-9 (Version None)
Quarter: 2005Q2

REPORT INFORMATION
  Report Type: 
  Country: None (occurrence: None)
  Receive Date: 20050622
  Receipt Date: 20050613
  Transmission Date: 20051028
  Serious: Yes (Hospitalization)
  Sender: FDA-Public Use
  Company Number: US-JNJFOC-20050302973

PATIENT
  Sex: Female

DRUGS (1)
  1. DURAGESIC-100 [Suspect]
     Dosage: USING FENTANYL-TTS FOR APPROXIMATELY 1 TO 2 YEARS
     Route: 062

REACTIONS (5)
  - ACNE [None]
  - APPLICATION SITE IRRITATION [None]
  - ASTHENIA [None]
  - CHEST PAIN [None]
  - PALPITATIONS [None]
